FAERS Safety Report 18028133 (Version 1)
Quarter: 2020Q3

REPORT INFORMATION
  Report Type: Report from Study
  Country: FR (occurrence: FR)
  Receive Date: 20200716
  Receipt Date: 20200716
  Transmission Date: 20201103
  Serious: Yes (Other)
  Sender: FDA-Public Use
  Company Number: FR-BAXTER-2020BAX014592

PATIENT
  Age: 68 Year
  Sex: Male

DRUGS (3)
  1. VELCADE [Suspect]
     Active Substance: BORTEZOMIB
     Indication: PLASMA CELL MYELOMA
     Dosage: BORTEZOMIB 1 MG/INTAKE 2 INTAKE/WEEK 2 WEEK(S)/CYCLE
     Route: 065
     Dates: end: 20171124
  2. DEXAMETHASONE. [Suspect]
     Active Substance: DEXAMETHASONE
     Indication: PLASMA CELL MYELOMA
     Dosage: DEXAMETHASONE 20 MG/INTAKE 4 INTAKE/WEEK 2 WEEK(S)/CYCLE
     Route: 065
     Dates: end: 20171124
  3. DOXIL [Suspect]
     Active Substance: DOXORUBICIN HYDROCHLORIDE
     Indication: PLASMA CELL MYELOMA
     Dosage: DOXORUBICIN 1 MG/INTAKE 1 INTAKE/WEEK 1 WEEK(S)/CYCLE
     Route: 065
     Dates: end: 20171124

REACTIONS (1)
  - Haemorrhage [Unknown]

NARRATIVE: CASE EVENT DATE: 20171124
